FAERS Safety Report 12658039 (Version 1)
Quarter: 2016Q3

REPORT INFORMATION
  Report Type: Spontaneous
  Country: US (occurrence: US)
  Receive Date: 20160817
  Receipt Date: 20160817
  Transmission Date: 20161109
  Serious: No
  Sender: FDA-Public Use
  Company Number: US-ASTRAZENECA-2016SE51306

PATIENT
  Age: 23269 Day
  Sex: Male
  Weight: 93 kg

DRUGS (5)
  1. METFORMIN [Concomitant]
     Active Substance: METFORMIN HYDROCHLORIDE
     Indication: DIABETES MELLITUS
     Route: 048
     Dates: start: 2004
  2. BYDUREON [Suspect]
     Active Substance: EXENATIDE
     Indication: DIABETES MELLITUS
     Route: 058
     Dates: start: 201309
  3. LISINOPRIL. [Suspect]
     Active Substance: LISINOPRIL
     Indication: PROPHYLAXIS
     Route: 048
     Dates: start: 1995
  4. GABAPENTIN. [Concomitant]
     Active Substance: GABAPENTIN
     Indication: NEUROPATHY PERIPHERAL
     Route: 048
     Dates: start: 201211
  5. SOLAR LANTUS [Concomitant]
     Indication: DIABETES MELLITUS

REACTIONS (4)
  - Product quality issue [Unknown]
  - Drug dose omission [Unknown]
  - Flushing [Unknown]
  - Asthenia [Unknown]

NARRATIVE: CASE EVENT DATE: 20160421
